FAERS Safety Report 8393791-9 (Version None)
Quarter: 2012Q2

REPORT INFORMATION
  Report Type: 
  Country: None (occurrence: None)
  Receive Date: 20120530
  Receipt Date: 20120522
  Transmission Date: 20120825
  Serious: No
  Sender: FDA-Public Use
  Company Number: US-BIOGENIDEC-2012BI018258

PATIENT
  Sex: Female

DRUGS (4)
  1. AVONEX [Suspect]
     Route: 030
     Dates: start: 20100916
  2. AVONEX [Suspect]
     Route: 030
     Dates: start: 20090910
  3. AVONEX [Suspect]
     Indication: MULTIPLE SCLEROSIS
     Route: 030
     Dates: start: 19990701, end: 20090827
  4. AVONEX [Suspect]
     Route: 030
     Dates: start: 20100401

REACTIONS (2)
  - SCAR [None]
  - INFLUENZA LIKE ILLNESS [None]
